FAERS Safety Report 20405157 (Version 1)
Quarter: 2022Q1

REPORT INFORMATION
  Report Type: Spontaneous
  Country: US (occurrence: None)
  Receive Date: 20220128
  Receipt Date: 20220128
  Transmission Date: 20220423
  Serious: Yes (Other)
  Sender: FDA-Public Use
  Company Number: None

PATIENT
  Age: 15 Year
  Weight: 47.7 kg

DRUGS (1)
  1. LUPRON DEPOT [Suspect]
     Active Substance: LEUPROLIDE ACETATE
     Indication: Transgender hormonal therapy
     Dosage: OTHER FREQUENCY : INJECT EVERY 3 MON;?
     Route: 030
     Dates: start: 20210708, end: 20220121

REACTIONS (2)
  - Abscess sterile [None]
  - Induration [None]

NARRATIVE: CASE EVENT DATE: 20220121
